FAERS Safety Report 5500651-7 (Version None)
Quarter: 2007Q4

REPORT INFORMATION
  Report Type: 
  Country: None (occurrence: None)
  Receive Date: 20071029
  Receipt Date: 20071018
  Transmission Date: 20080405
  Serious: Yes (Hospitalization)
  Sender: FDA-Public Use
  Company Number: A0657088A

PATIENT
  Age: 69 Year
  Sex: Male
  Weight: 113.6 kg

DRUGS (8)
  1. ALLI [Suspect]
     Route: 048
     Dates: start: 20070615, end: 20070616
  2. ASPIRIN [Concomitant]
  3. BYETTA [Concomitant]
     Dosage: 10MEQ TWICE PER DAY
  4. MAVIK [Concomitant]
     Dosage: 2MG PER DAY
  5. NOVOLIN N [Concomitant]
     Dosage: 40UNIT TWICE PER DAY
  6. OMEGA FISH OIL [Concomitant]
  7. COREG CR [Concomitant]
  8. MULTIPLE VITAMIN [Concomitant]

REACTIONS (12)
  - ASTHENIA [None]
  - ATRIAL FIBRILLATION [None]
  - ATRIAL TACHYCARDIA [None]
  - BLOOD PRESSURE INCREASED [None]
  - DIZZINESS [None]
  - DYSPNOEA [None]
  - HEART RATE INCREASED [None]
  - HYPERHIDROSIS [None]
  - MALAISE [None]
  - PALPITATIONS [None]
  - SUPRAVENTRICULAR TACHYCARDIA [None]
  - TREMOR [None]
